FAERS Safety Report 25483397 (Version 1)
Quarter: 2025Q2

REPORT INFORMATION
  Report Type: Spontaneous
  Country: US (occurrence: US)
  Receive Date: 20250626
  Receipt Date: 20250626
  Transmission Date: 20250716
  Serious: Yes (Death)
  Sender: RECKITT BENCKISER
  Company Number: US-Indivior Limited-INDV-163227-2025

PATIENT
  Sex: Male

DRUGS (2)
  1. OPVEE [Suspect]
     Active Substance: NALMEFENE HYDROCHLORIDE
     Indication: Overdose
     Route: 045
  2. OPVEE [Suspect]
     Active Substance: NALMEFENE HYDROCHLORIDE
     Route: 045

REACTIONS (1)
  - Therapy non-responder [Fatal]
